FAERS Safety Report 12889958 (Version 1)
Quarter: 2016Q4

REPORT INFORMATION
  Report Type: Spontaneous
  Country: FR (occurrence: FR)
  Receive Date: 20161027
  Receipt Date: 20161027
  Transmission Date: 20170207
  Serious: Yes (Hospitalization)
  Sender: FDA-Public Use
  Company Number: FR-SA-2016SA194691

PATIENT
  Age: 91 Year
  Sex: Female

DRUGS (15)
  1. ZOLOFT [Suspect]
     Active Substance: SERTRALINE HYDROCHLORIDE
     Route: 065
     Dates: end: 20111226
  2. LASILIX [Suspect]
     Active Substance: FUROSEMIDE
     Route: 048
     Dates: end: 20111226
  3. ATIVAN [Suspect]
     Active Substance: LORAZEPAM
     Route: 048
     Dates: start: 20120102
  4. MOVICOL [Concomitant]
     Active Substance: POLYETHYLENE GLYCOL 3350\POTASSIUM CHLORIDE\SODIUM BICARBONATE\SODIUM CHLORIDE
  5. NIFLUGEL [Concomitant]
     Active Substance: NIFLUMIC ACID
     Dosage: 2.5 PERCENT
  6. DOLIPRANE [Concomitant]
     Active Substance: ACETAMINOPHEN
  7. COAPROVEL [Suspect]
     Active Substance: HYDROCHLOROTHIAZIDE\IRBESARTAN
     Dosage: 300MG/25 MG
     Route: 048
     Dates: end: 20111226
  8. SPIRONOLACTONE. [Suspect]
     Active Substance: SPIRONOLACTONE
     Route: 048
     Dates: start: 20111222, end: 20111226
  9. ZOLOFT [Suspect]
     Active Substance: SERTRALINE HYDROCHLORIDE
     Route: 048
     Dates: start: 20120102
  10. ATIVAN [Suspect]
     Active Substance: LORAZEPAM
     Route: 048
     Dates: end: 20111226
  11. GAVISCON [Concomitant]
     Active Substance: ALUMINUM HYDROXIDE\MAGNESIUM CARBONATE
  12. MEDIATENSYL [Suspect]
     Active Substance: URAPIDIL
     Route: 048
     Dates: end: 20111226
  13. NOCTRAN [Concomitant]
     Active Substance: ACEPROMAZINE MALEATE\ACEPROMETAZINE\CLORAZEPATE DIPOTASSIUM
  14. INEXIUM [Concomitant]
     Active Substance: ESOMEPRAZOLE
     Dosage: 20 MG
  15. LERCAN [Concomitant]
     Active Substance: LERCANIDIPINE
     Dosage: 20 MG

REACTIONS (4)
  - Acute kidney injury [Recovered/Resolved]
  - Orthostatic hypotension [Recovered/Resolved]
  - Hyponatraemia [Recovered/Resolved]
  - Dehydration [Recovered/Resolved]

NARRATIVE: CASE EVENT DATE: 20111226
